FAERS Safety Report 12686891 (Version 1)
Quarter: 2016Q3

REPORT INFORMATION
  Report Type: Spontaneous
  Country: US (occurrence: US)
  Receive Date: 20160825
  Receipt Date: 20160825
  Transmission Date: 20161109
  Serious: No
  Sender: FDA-Public Use
  Company Number: US-JAZZ-2016-US-007159

PATIENT
  Sex: Female

DRUGS (43)
  1. XYREM [Suspect]
     Active Substance: SODIUM OXYBATE
     Dosage: 4.5 G, BID
     Route: 048
     Dates: start: 201507
  2. BROVANA [Concomitant]
     Active Substance: ARFORMOTEROL TARTRATE
  3. MAXAIR [Concomitant]
     Active Substance: PIRBUTEROL ACETATE
  4. ESTRADIOL CYPIONATE [Concomitant]
     Active Substance: ESTRADIOL CYPIONATE
  5. OXYCODONE HCL CR [Concomitant]
  6. BENTYL [Concomitant]
     Active Substance: DICYCLOMINE HYDROCHLORIDE
  7. ATROVENT HFA [Concomitant]
     Active Substance: IPRATROPIUM BROMIDE
  8. LIDODERM [Concomitant]
     Active Substance: LIDOCAINE
  9. CARISOPRODOL COMPOUND [Concomitant]
  10. LISINOPRIL. [Concomitant]
     Active Substance: LISINOPRIL
  11. XYREM [Suspect]
     Active Substance: SODIUM OXYBATE
     Indication: NARCOLEPSY
     Dosage: 2.25 G, BID
     Route: 048
     Dates: start: 200305, end: 2004
  12. OXYCONTIN [Concomitant]
     Active Substance: OXYCODONE HYDROCHLORIDE
  13. AMLODIPINE BESYLATE. [Concomitant]
     Active Substance: AMLODIPINE BESYLATE
  14. IMITREX [Concomitant]
     Active Substance: SUMATRIPTAN SUCCINATE
  15. LASIX [Concomitant]
     Active Substance: FUROSEMIDE
  16. CLONIDINE HCL [Concomitant]
     Active Substance: CLONIDINE HYDROCHLORIDE
  17. CROMOLYN SODIUM. [Concomitant]
     Active Substance: CROMOLYN SODIUM
  18. SPIRONOLACTONE. [Concomitant]
     Active Substance: SPIRONOLACTONE
  19. TOVIAZ [Concomitant]
     Active Substance: FESOTERODINE FUMARATE
  20. OMEPRAZOLE DR [Concomitant]
     Active Substance: OMEPRAZOLE
  21. XYREM [Suspect]
     Active Substance: SODIUM OXYBATE
     Indication: CATAPLEXY
     Dosage: 4.5 G, BID
     Route: 048
     Dates: start: 200601, end: 2011
  22. LEVSIN [Concomitant]
     Active Substance: HYOSCYAMINE SULFATE
  23. NASOCORT [Concomitant]
     Active Substance: BUDESONIDE
  24. PROCARDIA XL [Concomitant]
     Active Substance: NIFEDIPINE
  25. NEURONTIN [Concomitant]
     Active Substance: GABAPENTIN
  26. ZYRTEC [Concomitant]
     Active Substance: CETIRIZINE HYDROCHLORIDE
  27. SINGULAIR [Concomitant]
     Active Substance: MONTELUKAST SODIUM
  28. LORTAB [Concomitant]
     Active Substance: ACETAMINOPHEN\HYDROCODONE BITARTRATE
  29. QVAR [Concomitant]
     Active Substance: BECLOMETHASONE DIPROPIONATE
  30. SOMA [Concomitant]
     Active Substance: CARISOPRODOL
  31. ULTRAM [Concomitant]
     Active Substance: TRAMADOL HYDROCHLORIDE
  32. URIBEL [Concomitant]
     Active Substance: HYOSCYAMINE SULFATE\METHENAMINE\METHYLENE BLUE\PHENYL SALICYLATE\SODIUM PHOSPHATE, MONOBASIC, MONOHYDRATE
  33. HYDROCODONE BITARTRATE AND ACETAMINOPHEN [Concomitant]
     Active Substance: ACETAMINOPHEN\HYDROCODONE BITARTRATE
  34. LEVOTHYROXINE SODIUM. [Concomitant]
     Active Substance: LEVOTHYROXINE SODIUM
  35. PROVIGIL [Concomitant]
     Active Substance: MODAFINIL
  36. RESTASIS [Concomitant]
     Active Substance: CYCLOSPORINE
  37. XYREM [Suspect]
     Active Substance: SODIUM OXYBATE
     Dosage: 4.5 G, BID
     Route: 048
     Dates: start: 201203, end: 2012
  38. XYREM [Suspect]
     Active Substance: SODIUM OXYBATE
     Dosage: 4.5 G, BID
     Route: 048
     Dates: start: 201303, end: 2015
  39. BOTOX [Concomitant]
     Active Substance: ONABOTULINUMTOXINA
  40. PREDNISONE. [Concomitant]
     Active Substance: PREDNISONE
  41. BACLOFEN. [Concomitant]
     Active Substance: BACLOFEN
  42. MELOXICAM. [Concomitant]
     Active Substance: MELOXICAM
  43. TRAMADOL HCL ER [Concomitant]

REACTIONS (1)
  - Pyrexia [Unknown]
